FAERS Safety Report 6662643-4 (Version None)
Quarter: 2010Q1

REPORT INFORMATION
  Report Type: 
  Country: None (occurrence: None)
  Receive Date: 20100329
  Receipt Date: 20100316
  Transmission Date: 20100710
  Serious: Yes (Other)
  Sender: FDA-Public Use
  Company Number: 20108497

PATIENT

DRUGS (2)
  1. LIORESAL [Suspect]
     Indication: MUSCLE SPASTICITY
     Dosage: DAILY, INTRATHECAL
     Route: 037
  2. IV KETAMINE [Concomitant]

REACTIONS (4)
  - EUPHORIC MOOD [None]
  - MALAISE [None]
  - NAUSEA [None]
  - POST LUMBAR PUNCTURE SYNDROME [None]
